FAERS Safety Report 9789678 (Version 1)
Quarter: 2013Q4

REPORT INFORMATION
  Report Type: Spontaneous
  Country: FR (occurrence: None)
  Receive Date: 20131227
  Receipt Date: 20131227
  Transmission Date: 20140711
  Serious: Yes (Hospitalization)
  Sender: FDA-Public Use
  Company Number: 1976362

PATIENT
  Age: 62 Year
  Sex: Female

DRUGS (2)
  1. (CARBOPLATIN) [Suspect]
     Indication: ENDOMETRIAL CANCER METASTATIC
     Route: 042
     Dates: start: 20101208, end: 20101208
  2. (PACLITAXEL EBEWE) [Suspect]
     Indication: ENDOMETRIAL CANCER METASTATIC
     Route: 042
     Dates: start: 20101208, end: 20101208

REACTIONS (3)
  - Chest discomfort [None]
  - Hypersensitivity [None]
  - Malaise [None]
